FAERS Safety Report 16992318 (Version 1)
Quarter: 2019Q4

REPORT INFORMATION
  Report Type: Spontaneous
  Country: US (occurrence: US)
  Receive Date: 20191104
  Receipt Date: 20191104
  Transmission Date: 20200122
  Serious: Yes (Life-Threatening, Other)
  Sender: FDA-Public Use
  Company Number: None

PATIENT
  Age: 38 Year
  Sex: Female

DRUGS (1)
  1. PRAVASTATIN. [Suspect]
     Active Substance: PRAVASTATIN
     Indication: BLOOD CHOLESTEROL INCREASED
     Route: 048
     Dates: start: 20190920, end: 20191022

REACTIONS (16)
  - Oral pain [None]
  - Gingival swelling [None]
  - Pharyngeal swelling [None]
  - Aphthous ulcer [None]
  - Myalgia [None]
  - Dyskinesia [None]
  - Chest pain [None]
  - Swelling [None]
  - Taste disorder [None]
  - Angina pectoris [None]
  - Peripheral swelling [None]
  - Gingival pain [None]
  - Swollen tongue [None]
  - Dyspnoea [None]
  - Muscle swelling [None]
  - Mouth swelling [None]

NARRATIVE: CASE EVENT DATE: 20191022
